FAERS Safety Report 7365996-7 (Version None)
Quarter: 2011Q1

REPORT INFORMATION
  Report Type: 
  Country: None (occurrence: None)
  Receive Date: 20110317
  Receipt Date: 20110317
  Transmission Date: 20110831
  Serious: Yes (Other)
  Sender: FDA-Public Use
  Company Number: None

PATIENT
  Age: 39 Year
  Sex: Female
  Weight: 49.8957 kg

DRUGS (2)
  1. SULFAMETHOXAZOLE AND TRIMETHOPRIM [Suspect]
     Indication: FURUNCLE
     Dosage: 10 MG 1 637524
     Dates: start: 20110228
  2. DOXYCYCLINE [Suspect]
     Indication: FURUNCLE
     Dosage: 10 MG 1 637523
     Dates: start: 20110228

REACTIONS (2)
  - RASH PRURITIC [None]
  - RASH ERYTHEMATOUS [None]
